FAERS Safety Report 7749214-3 (Version None)
Quarter: 2011Q3

REPORT INFORMATION
  Report Type: 
  Country: None (occurrence: None)
  Receive Date: 20110909
  Receipt Date: 20110826
  Transmission Date: 20111222
  Serious: Yes (Disabling)
  Sender: FDA-Public Use
  Company Number: 1000023476

PATIENT
  Age: 83 Year
  Sex: Male

DRUGS (4)
  1. OXYGEN (OXYGEN) (OXYGEN) [Concomitant]
  2. SYMBICORT (BUDESONIDE  FORMOTEROL FUMARATE) (BUDESONIDE, FORMOTEROL  F [Concomitant]
  3. ROFLUMILAST (ROFLUMILAST) (TABLETS) [Suspect]
     Indication: CHRONIC OBSTRUCTIVE PULMONARY DISEASE
     Dosage: 500 MCG (500 MCG, 1 IN 1 D), ORAL
     Route: 048
     Dates: start: 20110310, end: 20110805
  4. SPIRIVA (TIOTROPIUM BROMIDE)(TIOTROPIUM BROMIDE) [Concomitant]

REACTIONS (5)
  - WEIGHT DECREASED [None]
  - DIARRHOEA [None]
  - ESSENTIAL TREMOR [None]
  - INTENTION TREMOR [None]
  - BURSITIS [None]
